FAERS Safety Report 23417205 (Version 6)
Quarter: 2025Q1

REPORT INFORMATION
  Report Type: Spontaneous
  Country: US (occurrence: US)
  Receive Date: 20240118
  Receipt Date: 20250128
  Transmission Date: 20250409
  Serious: No
  Sender: PFIZER
  Company Number: US-PFIZER INC-PV202300209979

PATIENT
  Age: 58 Year
  Sex: Male

DRUGS (1)
  1. GENOTROPIN [Suspect]
     Active Substance: SOMATROPIN
     Dosage: ALTERNATING 1.4MG AND 1.6MG

REACTIONS (4)
  - Product prescribing error [Unknown]
  - Device issue [Unknown]
  - Drug dose omission by device [Unknown]
  - Malaise [Unknown]
